FAERS Safety Report 15220774 (Version 2)
Quarter: 2018Q3

REPORT INFORMATION
  Report Type: Spontaneous
  Country: IT (occurrence: IT)
  Receive Date: 20180731
  Receipt Date: 20180806
  Transmission Date: 20181010
  Serious: Yes (Hospitalization, Other)
  Sender: FDA-Public Use
  Company Number: IT-MYLANLABS-2018M1009058

PATIENT
  Age: 43 Year
  Sex: Male

DRUGS (6)
  1. PREGABALIN. [Suspect]
     Active Substance: PREGABALIN
     Indication: ALCOHOLISM
  2. PREGABALIN. [Suspect]
     Active Substance: PREGABALIN
     Indication: ANXIETY
     Dosage: 1800 MG DAILY
     Route: 065
  3. PREGABALIN. [Suspect]
     Active Substance: PREGABALIN
     Indication: RADICULAR PAIN
  4. VALPROIC ACID. [Concomitant]
     Active Substance: VALPROIC ACID
     Indication: ANXIETY DISORDER
     Dosage: 500 MG, QD
     Route: 065
  5. PREGABALIN. [Suspect]
     Active Substance: PREGABALIN
     Indication: BACK PAIN
     Dosage: 300 MG DAILY, PATIENT PROGRESSIVELY INCREASED PREGABALIN DOSAGE UP TO 1800 MG/DAY
  6. VENLAFAXINE [Concomitant]
     Active Substance: VENLAFAXINE HYDROCHLORIDE
     Indication: ANXIETY DISORDER
     Dosage: 75 MG, QD

REACTIONS (5)
  - Intentional product misuse [Recovering/Resolving]
  - Drug tolerance [Recovering/Resolving]
  - Drug abuse [Recovering/Resolving]
  - Drug dependence [Unknown]
  - Intentional overdose [Recovering/Resolving]
